FAERS Safety Report 25658010 (Version 2)
Quarter: 2025Q3

REPORT INFORMATION
  Report Type: Spontaneous
  Country: US (occurrence: US)
  Receive Date: 20250808
  Receipt Date: 20250905
  Transmission Date: 20251021
  Serious: No
  Sender: LEO PHARM
  Company Number: US-LEO Pharma-381960

PATIENT
  Age: 23 Year
  Sex: Male

DRUGS (3)
  1. ADBRY [Suspect]
     Active Substance: TRALOKINUMAB-LDRM
     Indication: Dermatitis atopic
     Dosage: TREATMENT REPORTED AS ONGOING
     Route: 058
     Dates: start: 202304
  2. CUTAQUIG [Concomitant]
     Active Substance: HUMAN IMMUNOGLOBULIN G
     Indication: Product used for unknown indication
  3. EBGLYSS [Concomitant]
     Active Substance: LEBRIKIZUMAB-LBKZ
     Indication: Product used for unknown indication

REACTIONS (2)
  - Injection site discharge [Unknown]
  - Injection site discomfort [Unknown]
